FAERS Safety Report 8824768 (Version 1)
Quarter: 2012Q4

REPORT INFORMATION
  Report Type: 
  Country: CH (occurrence: CH)
  Receive Date: 20121004
  Receipt Date: 20121004
  Transmission Date: 20130627
  Serious: Yes (Hospitalization)
  Sender: FDA-Public Use
  Company Number: CH-PFIZER INC-2012243819

PATIENT
  Age: 73 Year
  Sex: Male

DRUGS (27)
  1. PANTOZOL [Suspect]
     Indication: HELICOBACTER INFECTION
     Dosage: 40 mg, 2x/day
     Route: 048
     Dates: start: 201207, end: 20120815
  2. PANTOZOL [Suspect]
     Dosage: 40 mg, 1x/day
     Route: 048
     Dates: start: 20120816
  3. PANTOZOL [Suspect]
     Dosage: 40 mg, 2x/day
     Route: 048
     Dates: start: 201201, end: 201203
  4. AUGMENTIN [Suspect]
     Indication: HELICOBACTER INFECTION
     Dosage: 1000 mg, 2x/day
     Route: 048
     Dates: start: 20120806, end: 20120815
  5. KLACID [Suspect]
     Indication: HELICOBACTER INFECTION
     Dosage: 250 mg, 2x/day
     Route: 048
     Dates: start: 20120806, end: 20120815
  6. LEUKERAN [Concomitant]
     Dosage: 2 mg, 2x/day
     Route: 048
     Dates: start: 201202, end: 20120724
  7. SORTIS [Concomitant]
     Dosage: 40 mg, 1x/day
     Route: 048
     Dates: start: 20120805
  8. CIPROXINE [Concomitant]
     Dosage: 500 mg, 2x/day
     Route: 048
     Dates: start: 20120803, end: 20120805
  9. ZOLPIDEM [Concomitant]
     Dosage: 5 mg, 1x/day
     Route: 048
     Dates: start: 20120805, end: 20120805
  10. ASPIRINE [Concomitant]
     Dosage: 100 mg, 1x/day
     Route: 048
  11. DUODART [Concomitant]
     Dosage: 1 DF, 1x/day
     Dates: start: 201207
  12. ALLOPUR [Concomitant]
     Dosage: 50 mg, 1x/day
  13. CORDARONE [Concomitant]
     Dosage: 200 mg, 1x/day
     Route: 048
  14. CYMBALTA [Concomitant]
     Dosage: 30 mg, alternate day
     Route: 048
  15. EUTHYROX [Concomitant]
     Dosage: 100 ug, 1x/day
     Route: 048
  16. PERINDOPRIL [Concomitant]
     Dosage: 30 mg, 1x/day
     Route: 048
     Dates: start: 20120807, end: 20120825
  17. TORASEMIDE [Concomitant]
     Dosage: 10 mg, 1x/day
     Route: 048
  18. XENALON [Concomitant]
     Dosage: 25 mg, alternate day
     Route: 048
  19. BELOC ZOK [Concomitant]
     Dosage: 12.5 mg, 1x/day
     Route: 048
  20. PREDNISONE [Concomitant]
     Dosage: 7.5 mg, alternate day
  21. PREDNISONE [Concomitant]
     Dosage: 12.5 mg, 1x/day
     Dates: start: 20120803, end: 20120807
  22. PREDNISONE [Concomitant]
     Dosage: 5 mg, alternate day
     Route: 048
  23. BECOZYME FORTE [Concomitant]
     Dosage: 1 DF, 1x/day
     Route: 048
  24. VITAMIN B1 [Concomitant]
     Dosage: 300 mg, 1x/day
     Route: 048
  25. CALCIMAGON-D3 [Concomitant]
     Dosage: 1 DF, 1x/day
     Route: 048
  26. LANTUS [Concomitant]
     Dosage: 26 IU, as needed
     Route: 048
  27. NOVORAPID [Concomitant]
     Dosage: 1 DF, 3x/day
     Route: 058

REACTIONS (2)
  - Hepatitis cholestatic [Not Recovered/Not Resolved]
  - Jaundice cholestatic [Not Recovered/Not Resolved]
